FAERS Safety Report 6720535-6 (Version None)
Quarter: 2010Q2

REPORT INFORMATION
  Report Type: 
  Country: None (occurrence: None)
  Receive Date: 20100511
  Receipt Date: 20100511
  Transmission Date: 20101027
  Serious: Yes (Life-Threatening)
  Sender: FDA-Public Use
  Company Number: None

PATIENT
  Age: 68 Year
  Sex: Female
  Weight: 100 kg

DRUGS (1)
  1. VENTOLIN HFA [Suspect]
     Indication: ASTHMA
     Dosage: 2 PUFFS EVERY 2 HOURS, AS NEEDED 3 TO 4 X A DAY
     Dates: start: 20100301, end: 20100314

REACTIONS (2)
  - COUGH [None]
  - PRODUCT SUBSTITUTION ISSUE [None]
